FAERS Safety Report 10198864 (Version 1)
Quarter: 2014Q2

REPORT INFORMATION
  Report Type: Spontaneous
  Country: US (occurrence: None)
  Receive Date: 20140523
  Receipt Date: 20140523
  Transmission Date: 20141212
  Serious: Yes (Disabling)
  Sender: FDA-Public Use
  Company Number: None

PATIENT
  Age: 63 Year
  Sex: Female
  Weight: 70.31 kg

DRUGS (1)
  1. DULOXETINE HCL 30 MG LUPIN [Suspect]
     Indication: DEPRESSION
     Dosage: 3 PILLS, ONCE DAILY, TAKEN BY MOUTH
     Route: 048
     Dates: start: 20140423, end: 20140522

REACTIONS (3)
  - Product substitution issue [None]
  - Drug effect decreased [None]
  - Condition aggravated [None]
